FAERS Safety Report 8590115 (Version 6)
Quarter: 2014Q2

REPORT INFORMATION
  Report Type: Report from Study
  Country: FR (occurrence: FR)
  Receive Date: 20120601
  Receipt Date: 20140604
  Transmission Date: 20141212
  Serious: Yes (Death, Life-Threatening, Hospitalization)
  Sender: FDA-Public Use
  Company Number: PHHO2012FR008200

PATIENT
  Sex: 0

DRUGS (6)
  1. SOM230 [Suspect]
     Dosage: 60 MG, UNK
     Dates: start: 20120502, end: 20120502
  2. AFINITOR [Suspect]
     Dosage: 10 MG, UNK
     Route: 048
     Dates: start: 20120502, end: 20120527
  3. KENZEN [Concomitant]
     Indication: HYPERTENSION
     Dosage: 4 MG, UNK
     Dates: start: 2002
  4. OMEPRAZOLE [Concomitant]
     Indication: GASTROOESOPHAGEAL REFLUX DISEASE
     Dosage: 20 MG, UNK
  5. SPIRIVA [Concomitant]
     Indication: BRONCHITIS
     Dosage: UNK
     Dates: start: 2007
  6. EZETROL [Concomitant]
     Indication: HYPERCHOLESTEROLAEMIA
     Dosage: 10 MG, UNK
     Dates: start: 20120426

REACTIONS (1)
  - Ketoacidosis [Fatal]
